FAERS Safety Report 4594967-9 (Version None)
Quarter: 2005Q1

REPORT INFORMATION
  Report Type: 
  Country: None (occurrence: None)
  Receive Date: 20050223
  Receipt Date: 20041209
  Transmission Date: 20050727
  Serious: Yes (Hospitalization)
  Sender: FDA-Public Use
  Company Number: 2004BI001243

PATIENT
  Age: 33 Year
  Sex: Male
  Weight: 77.1115 kg

DRUGS (2)
  1. AVONEX [Suspect]
     Indication: MULTIPLE SCLEROSIS
     Dosage: 30 UG; QW; IM
     Route: 030
     Dates: start: 20000301, end: 20030101
  2. AVONEX [Suspect]
     Indication: MULTIPLE SCLEROSIS
     Dosage: 30 UG; QW ; IM
     Route: 030
     Dates: start: 20030101

REACTIONS (7)
  - CONDITION AGGRAVATED [None]
  - CONVULSION [None]
  - EPILEPSY [None]
  - GAIT DISTURBANCE [None]
  - MEMORY IMPAIRMENT [None]
  - SCROTAL PAIN [None]
  - UNEVALUABLE EVENT [None]
